FAERS Safety Report 10511295 (Version 1)
Quarter: 2014Q4

REPORT INFORMATION
  Report Type: Spontaneous
  Country: US (occurrence: None)
  Receive Date: 20141009
  Receipt Date: 20141009
  Transmission Date: 20150528
  Serious: Yes (Life-Threatening, Hospitalization)
  Sender: FDA-Public Use
  Company Number: None

PATIENT
  Age: 65 Year
  Sex: Male
  Weight: 138 kg

DRUGS (4)
  1. VANCOMYCIN [Suspect]
     Active Substance: VANCOMYCIN
     Indication: CELLULITIS STAPHYLOCOCCAL
     Dosage: 1250  BID  INTRAVENOUS
     Route: 042
     Dates: start: 20140908, end: 20140913
  2. VANCOMYCIN [Suspect]
     Active Substance: VANCOMYCIN
     Indication: SEPSIS
     Dosage: 1250  BID  INTRAVENOUS
     Route: 042
     Dates: start: 20140908, end: 20140913
  3. ZOSYN [Concomitant]
     Active Substance: PIPERACILLIN SODIUM\TAZOBACTAM SODIUM
  4. HEPARIN [Concomitant]
     Active Substance: HEPARIN SODIUM

REACTIONS (2)
  - Pulmonary haemorrhage [None]
  - Thrombocytopenia [None]

NARRATIVE: CASE EVENT DATE: 20140914
